FAERS Safety Report 25747216 (Version 5)
Quarter: 2025Q4

REPORT INFORMATION
  Report Type: Spontaneous
  Country: JP (occurrence: JP)
  Receive Date: 20250901
  Receipt Date: 20251128
  Transmission Date: 20260118
  Serious: Yes (Hospitalization)
  Sender: BOEHRINGER INGELHEIM
  Company Number: JP-NBI-2025-BI-074846

PATIENT
  Age: 71 Year
  Sex: Male

DRUGS (5)
  1. OFEV [Suspect]
     Active Substance: NINTEDANIB
     Indication: Idiopathic pulmonary fibrosis
     Dates: start: 20250527, end: 20250714
  2. OFEV [Suspect]
     Active Substance: NINTEDANIB
  3. OFEV [Suspect]
     Active Substance: NINTEDANIB
     Dates: start: 20250913, end: 20250917
  4. OFEV [Suspect]
     Active Substance: NINTEDANIB
  5. UNSPECIFIED INGREDIENT [Concomitant]
     Active Substance: UNSPECIFIED INGREDIENT
     Indication: Cough

REACTIONS (42)
  - Gait inability [Unknown]
  - Lung abscess [Recovered/Resolved]
  - Dyspnoea [Unknown]
  - Diarrhoea [Recovered/Resolved]
  - Fatigue [Not Recovered/Not Resolved]
  - Body temperature increased [Recovered/Resolved]
  - Diarrhoea [Recovered/Resolved]
  - Crepitations [Unknown]
  - Musculoskeletal chest pain [Recovered/Resolved]
  - Muscle tightness [Recovered/Resolved]
  - Sputum discoloured [Recovered/Resolved]
  - Pain [Recovered/Resolved]
  - Diarrhoea [Recovering/Resolving]
  - C-reactive protein increased [Recovering/Resolving]
  - Faecaloma [Unknown]
  - Pyrexia [Recovered/Resolved]
  - Rhinorrhoea [Not Recovered/Not Resolved]
  - Nasal dryness [Not Recovered/Not Resolved]
  - Epistaxis [Not Recovered/Not Resolved]
  - Constipation [Recovered/Resolved]
  - Respiratory disorder [Unknown]
  - Pneumonia [Not Recovered/Not Resolved]
  - Diarrhoea [Recovered/Resolved]
  - Abnormal faeces [Unknown]
  - Flatulence [Unknown]
  - Pyrexia [Recovered/Resolved]
  - Pollakiuria [Not Recovered/Not Resolved]
  - Fatigue [Not Recovered/Not Resolved]
  - Dyspnoea [Not Recovered/Not Resolved]
  - Seasonal allergy [Recovered/Resolved]
  - Faeces hard [Not Recovered/Not Resolved]
  - Abdominal distension [Not Recovered/Not Resolved]
  - Heart rate increased [Not Recovered/Not Resolved]
  - Pulse absent [Unknown]
  - Decreased appetite [Not Recovered/Not Resolved]
  - Musculoskeletal pain [Unknown]
  - Traumatic lung injury [Not Recovered/Not Resolved]
  - Oxygen saturation abnormal [Unknown]
  - Oxygen saturation decreased [Unknown]
  - Rhinalgia [Not Recovered/Not Resolved]
  - Scab [Not Recovered/Not Resolved]
  - Pain [Unknown]

NARRATIVE: CASE EVENT DATE: 20250603
